FAERS Safety Report 6726595-0 (Version None)
Quarter: 2010Q2

REPORT INFORMATION
  Report Type: 
  Country: None (occurrence: None)
  Receive Date: 20100514
  Receipt Date: 20100504
  Transmission Date: 20101027
  Serious: Yes (Hospitalization, Other)
  Sender: FDA-Public Use
  Company Number: CH-ELI_LILLY_AND_COMPANY-CH201005002099

PATIENT
  Age: 57 Year
  Sex: Female

DRUGS (8)
  1. ZYPREXA [Suspect]
     Dosage: 5 MG, DAILY (1/D)
     Route: 048
     Dates: end: 20100420
  2. SERETIDE DISKUS [Concomitant]
     Dosage: 500 UG, 2/D
  3. DOSPIR [Concomitant]
     Dosage: UNK UNK, 4/D
  4. PREDNISONE [Concomitant]
     Dosage: 5 MG, QOD
     Route: 048
  5. PREDNISONE [Concomitant]
     Dosage: 10 MG, QOD
     Route: 048
  6. BUSPAR [Concomitant]
     Dosage: 5 MG, AS NEEDED
     Route: 048
  7. DAFALGAN [Concomitant]
     Dosage: 1 G, AS NEEDED
  8. VOLTAREN [Concomitant]
     Dosage: UNK UNK, AS NEEDED

REACTIONS (2)
  - BLOOD LACTIC ACID INCREASED [None]
  - RESPIRATORY FAILURE [None]
